FAERS Safety Report 25741560 (Version 1)
Quarter: 2025Q3

REPORT INFORMATION
  Report Type: Spontaneous
  Country: AU (occurrence: AU)
  Receive Date: 20250829
  Receipt Date: 20250829
  Transmission Date: 20251020
  Serious: Yes (Hospitalization, Other)
  Sender: NOVO NORDISK
  Company Number: None

PATIENT
  Age: 50 Year
  Sex: Male

DRUGS (3)
  1. SAXENDA [Suspect]
     Active Substance: LIRAGLUTIDE
     Indication: Product used for unknown indication
  2. ESOMEPRAZOLE [Concomitant]
     Active Substance: ESOMEPRAZOLE
     Indication: Gastric ulcer
  3. PANTOPRAZOLE SODIUM [Concomitant]
     Active Substance: PANTOPRAZOLE SODIUM
     Indication: Gastric ulcer

REACTIONS (15)
  - Gastrointestinal disorder [Recovering/Resolving]
  - Pulmonary mass [Recovering/Resolving]
  - Condition aggravated [Recovering/Resolving]
  - Renal cell carcinoma [Recovering/Resolving]
  - Renal mass [Recovering/Resolving]
  - Restlessness [Recovering/Resolving]
  - Serum ferritin increased [Unknown]
  - Vomiting [Recovering/Resolving]
  - Liver function test abnormal [Unknown]
  - Gastrointestinal ulcer [Recovering/Resolving]
  - Fat intolerance [Recovering/Resolving]
  - Cholelithiasis [Recovering/Resolving]
  - Abdominal pain upper [Recovering/Resolving]
  - Eructation [Unknown]
  - Umbilical hernia [Unknown]

NARRATIVE: CASE EVENT DATE: 20250408
